FAERS Safety Report 17856264 (Version 2)
Quarter: 2020Q2

REPORT INFORMATION
  Report Type: Spontaneous
  Country: US (occurrence: US)
  Receive Date: 20200603
  Receipt Date: 20200604
  Transmission Date: 20200714
  Serious: Yes (Death, Hospitalization)
  Sender: FDA-Public Use
  Company Number: US-UNITED THERAPEUTICS-UNT-2020-007256

PATIENT
  Age: 85 Year
  Sex: Male

DRUGS (4)
  1. REMODULIN [Suspect]
     Active Substance: TREPROSTINIL
     Dosage: UNK, CONTINUING
     Route: 058
     Dates: start: 20200501
  2. REMODULIN [Suspect]
     Active Substance: TREPROSTINIL
     Dosage: 0.0809 ?G/KG, CONTINUING
     Route: 058
     Dates: start: 20200527
  3. REMODULIN [Suspect]
     Active Substance: TREPROSTINIL
     Indication: PULMONARY ARTERIAL HYPERTENSION
     Dosage: UNK, CONTINUING
     Route: 058
     Dates: start: 20190109
  4. REMODULIN [Suspect]
     Active Substance: TREPROSTINIL
     Dosage: 0.0765 ?G/KG, CONTINUING
     Route: 058

REACTIONS (9)
  - Oxygen saturation decreased [Unknown]
  - Wheezing [Unknown]
  - Fluid overload [Unknown]
  - Sputum abnormal [Unknown]
  - Oedema peripheral [Unknown]
  - Dyspnoea [Unknown]
  - Death [Fatal]
  - Ascites [Unknown]
  - Fluid retention [Unknown]

NARRATIVE: CASE EVENT DATE: 202005
